FAERS Safety Report 4401896-X (Version None)
Quarter: 2004Q3

REPORT INFORMATION
  Report Type: 
  Country: None (occurrence: None)
  Receive Date: 20040714
  Receipt Date: 20040625
  Transmission Date: 20050211
  Serious: Yes (Other)
  Sender: FDA-Public Use
  Company Number: USA031151595

PATIENT
  Sex: Male

DRUGS (1)
  1. HUMATROPE [Suspect]
     Indication: GROWTH HORMONE DEFICIENCY
     Dates: start: 20010201, end: 20030301

REACTIONS (3)
  - PAIN [None]
  - SCOLIOSIS [None]
  - THERAPEUTIC RESPONSE DECREASED [None]
